FAERS Safety Report 7595673-9 (Version None)
Quarter: 2011Q3

REPORT INFORMATION
  Report Type: 
  Country: None (occurrence: None)
  Receive Date: 20110707
  Receipt Date: 20110627
  Transmission Date: 20111222
  Serious: Yes (Hospitalization, Other)
  Sender: FDA-Public Use
  Company Number: US-MERCK-1104USA02013

PATIENT
  Age: 67 Year
  Sex: Female
  Weight: 89 kg

DRUGS (2)
  1. FOSAMAX [Suspect]
     Route: 048
     Dates: end: 20070720
  2. FOSAMAX [Suspect]
     Indication: OSTEOPOROSIS
     Route: 048
     Dates: start: 20000101

REACTIONS (58)
  - OEDEMA PERIPHERAL [None]
  - BREAST DISORDER [None]
  - CATARACT [None]
  - CHEST PAIN [None]
  - PULMONARY FIBROSIS [None]
  - CHONDROCALCINOSIS [None]
  - INTERVERTEBRAL DISC DEGENERATION [None]
  - ESSENTIAL HYPERTENSION [None]
  - JOINT DISLOCATION [None]
  - VITAMIN D DEFICIENCY [None]
  - ONYCHOMYCOSIS [None]
  - EYE HAEMORRHAGE [None]
  - OSTEONECROSIS [None]
  - JOINT EFFUSION [None]
  - FIBROCYSTIC BREAST DISEASE [None]
  - EPISTAXIS [None]
  - SPINAL COLUMN STENOSIS [None]
  - GLOSSODYNIA [None]
  - RADICULITIS LUMBOSACRAL [None]
  - IMPAIRED HEALING [None]
  - DIASTOLIC DYSFUNCTION [None]
  - INTERMITTENT CLAUDICATION [None]
  - LOOSE TOOTH [None]
  - PERIODONTAL DISEASE [None]
  - INGROWING NAIL [None]
  - HYPERLIPIDAEMIA [None]
  - HYPERCHOLESTEROLAEMIA [None]
  - GASTROOESOPHAGEAL REFLUX DISEASE [None]
  - FRACTURED SACRUM [None]
  - BLOOD PRESSURE INCREASED [None]
  - DIZZINESS [None]
  - TEMPORAL ARTERITIS [None]
  - SPONDYLOLISTHESIS [None]
  - MUSCLE SPASMS [None]
  - SCIATICA [None]
  - CONSTIPATION [None]
  - FEMUR FRACTURE [None]
  - HYPERGAMMAGLOBULINAEMIA BENIGN MONOCLONAL [None]
  - SPINAL OSTEOARTHRITIS [None]
  - POLYURIA [None]
  - PALPITATIONS [None]
  - NAUSEA [None]
  - HEADACHE [None]
  - CORONARY ARTERY DISEASE [None]
  - FALL [None]
  - BACK PAIN [None]
  - TYPE V HYPERLIPIDAEMIA [None]
  - PAIN IN EXTREMITY [None]
  - PROTEUS INFECTION [None]
  - UTERINE DISORDER [None]
  - GASTRITIS [None]
  - ELECTROCARDIOGRAM ABNORMAL [None]
  - MITRAL VALVE INCOMPETENCE [None]
  - TRICUSPID VALVE INCOMPETENCE [None]
  - HYPOVITAMINOSIS [None]
  - VARICOSE VEIN [None]
  - FOOT DEFORMITY [None]
  - GINGIVITIS [None]
